FAERS Safety Report 6428032-2 (Version None)
Quarter: 2009Q4

REPORT INFORMATION
  Report Type: 
  Country: None (occurrence: None)
  Receive Date: 20091105
  Receipt Date: 20091028
  Transmission Date: 20100525
  Serious: Yes (Other)
  Sender: FDA-Public Use
  Company Number: CH-ASTRAZENECA-2009SE23815

PATIENT
  Age: 37 Year
  Sex: Female

DRUGS (17)
  1. SEROQUEL [Suspect]
     Route: 048
     Dates: start: 20060101
  2. DEPAKINO [Suspect]
     Indication: BIPOLAR DISORDER
  3. FLUOXETINE [Suspect]
     Indication: BIPOLAR DISORDER
  4. RIVOTRIL [Suspect]
     Indication: ANXIETY DISORDER
  5. SIFROL [Suspect]
     Indication: EXTRAPYRAMIDAL DISORDER
  6. DAFALGAN [Suspect]
     Indication: PAIN
  7. ACETYLSALICYLIC ACID [Suspect]
     Indication: PAIN
  8. MEFENAMIC ACID [Suspect]
     Indication: PAIN
     Dates: start: 20090805
  9. ORLISTAT [Suspect]
  10. LAXOBERON [Suspect]
     Indication: CONSTIPATION
  11. ONOTON [Suspect]
  12. LEVONORGESTREL [Suspect]
     Dates: start: 20090629, end: 20090630
  13. AMOXICILLIN [Suspect]
     Dates: start: 20090805, end: 20090810
  14. EXCEDRIN (MIGRAINE) [Suspect]
  15. IRON [Concomitant]
     Indication: ANAEMIA
  16. IRON [Concomitant]
     Dates: start: 20090722, end: 20090722
  17. SUPRADYN [Concomitant]

REACTIONS (1)
  - DRUG EXPOSURE DURING PREGNANCY [None]
